FAERS Safety Report 15697243 (Version 3)
Quarter: 2019Q3

REPORT INFORMATION
  Report Type: Report from Study
  Country: JP (occurrence: JP)
  Receive Date: 20181206
  Receipt Date: 20190705
  Transmission Date: 20191004
  Serious: Yes (Death, Hospitalization, Other)
  Sender: FDA-Public Use
  Company Number: JP-AMGEN-JPNCT2018174432

PATIENT
  Age: 78 Year
  Sex: Male

DRUGS (45)
  1. DARBEPOETIN ALFA [Suspect]
     Active Substance: DARBEPOETIN ALFA
     Dosage: 180 MICROGRAM, QWK
     Route: 058
     Dates: start: 20170104, end: 20170201
  2. DARBEPOETIN ALFA [Suspect]
     Active Substance: DARBEPOETIN ALFA
     Dosage: 180 MICROGRAM, Q2WK
     Route: 058
     Dates: start: 20170412
  3. NINJIN^YOEITO [Concomitant]
     Active Substance: HERBALS
     Dosage: UNK
     Route: 048
     Dates: end: 20161201
  4. VFEND [Concomitant]
     Active Substance: VORICONAZOLE
     Dosage: UNK
     Route: 042
     Dates: end: 20170327
  5. RINDERON [Concomitant]
     Dosage: UNK
     Route: 065
  6. MORPHINE HYDROCHLORIDE [Concomitant]
     Active Substance: MORPHINE HYDROCHLORIDE
     Dosage: UNK
     Route: 065
  7. TAKEPRON [Concomitant]
     Active Substance: LANSOPRAZOLE
     Indication: PROPHYLAXIS
     Dosage: UNK
     Route: 048
     Dates: end: 20170707
  8. ALMETA [Concomitant]
     Active Substance: ALCLOMETASONE DIPROPIONATE
     Indication: RASH
     Dosage: UNK
     Route: 061
     Dates: end: 20161116
  9. PRIMOBOLAN-DEPOT [Concomitant]
     Active Substance: METHENOLONE ENANTHATE
     Indication: MYELODYSPLASTIC SYNDROME
     Dosage: 10 MG, UNK
     Route: 048
     Dates: start: 20161214
  10. BISONO [Concomitant]
     Active Substance: BISOPROLOL
     Dosage: UNK
     Dates: end: 20170405
  11. MOHRUS L [Concomitant]
     Active Substance: KETOPROFEN
     Indication: BACK PAIN
     Dosage: UNK
     Dates: end: 20170714
  12. MOHRUS L [Concomitant]
     Active Substance: KETOPROFEN
     Indication: BACK PAIN
  13. MOHRUS PAP XR [Concomitant]
     Active Substance: KETOPROFEN
     Indication: BACK PAIN
  14. BAYASPIRIN [Concomitant]
     Active Substance: ASPIRIN
     Indication: PROPHYLAXIS
     Dosage: UNK
     Route: 048
     Dates: end: 20161116
  15. FEXOFENADINE HYDROCHLORIDE. [Concomitant]
     Active Substance: FEXOFENADINE HYDROCHLORIDE
     Indication: RASH
     Dosage: UNK
     Route: 048
     Dates: end: 20161116
  16. CLARITH [Concomitant]
     Active Substance: CLARITHROMYCIN
     Dosage: UNK
     Route: 048
     Dates: end: 20170412
  17. LASIX [Concomitant]
     Active Substance: FUROSEMIDE
     Dosage: UNK
     Route: 048
     Dates: end: 20170707
  18. CEFTRIAXONE SODIUM. [Concomitant]
     Active Substance: CEFTRIAXONE SODIUM
     Dosage: UNK
     Route: 042
     Dates: end: 20170331
  19. DARBEPOETIN ALFA [Suspect]
     Active Substance: DARBEPOETIN ALFA
     Indication: MYELODYSPLASTIC SYNDROME
     Dosage: 180 MICROGRAM, QWK
     Route: 058
     Dates: start: 20161102, end: 20161117
  20. DARBEPOETIN ALFA [Suspect]
     Active Substance: DARBEPOETIN ALFA
     Dosage: 180 MICROGRAM, Q2WK
     Route: 058
     Dates: start: 20161130, end: 20161228
  21. REVLIMID [Suspect]
     Active Substance: LENALIDOMIDE
     Indication: MYELODYSPLASTIC SYNDROME
     Dosage: 10 MILLIGRAM
     Route: 048
     Dates: start: 20161019, end: 20161108
  22. HARNAL [Concomitant]
     Active Substance: TAMSULOSIN HYDROCHLORIDE
     Indication: BENIGN PROSTATIC HYPERPLASIA
  23. VASOLAN [Concomitant]
     Dosage: UNK
     Route: 042
  24. ZOSYN [Concomitant]
     Active Substance: PIPERACILLIN SODIUM\TAZOBACTAM SODIUM
     Dosage: UNK
     Route: 042
     Dates: end: 20170713
  25. ALMETA [Concomitant]
     Active Substance: ALCLOMETASONE DIPROPIONATE
     Indication: RASH
  26. CALONAL [Concomitant]
     Active Substance: ACETAMINOPHEN
     Dosage: UNK
     Route: 048
     Dates: end: 20170201
  27. BAKTAR [Concomitant]
     Active Substance: SULFAMETHOXAZOLE\TRIMETHOPRIM
     Indication: PROPHYLAXIS
     Dosage: UNK
     Route: 048
     Dates: end: 20170215
  28. TAKECAB [Concomitant]
     Active Substance: VONOPRAZAN FUMURATE
     Indication: PROPHYLAXIS
     Dosage: UNK
     Route: 048
     Dates: end: 20170713
  29. HUMULIN R [Concomitant]
     Active Substance: INSULIN HUMAN
     Dosage: UNK
     Route: 065
     Dates: end: 20170330
  30. DARBEPOETIN ALFA [Suspect]
     Active Substance: DARBEPOETIN ALFA
     Dosage: 180 MICROGRAM, QD
     Route: 058
     Dates: start: 20170405, end: 20170405
  31. PREDONINE [Suspect]
     Active Substance: PREDNISOLONE
     Indication: RASH
     Dosage: UNK
     Route: 048
     Dates: end: 20161116
  32. PRIMOBOLAN-DEPOT [Concomitant]
     Active Substance: METHENOLONE ENANTHATE
     Dosage: 15 MG, UNK
     Route: 048
     Dates: end: 20170707
  33. TENELIA [Concomitant]
     Active Substance: TENELIGLIPTIN
     Dosage: UNK
     Route: 048
     Dates: end: 20170713
  34. ZOLPIDEM TARTRATE. [Concomitant]
     Active Substance: ZOLPIDEM TARTRATE
     Indication: INSOMNIA
     Dosage: UNK
     Route: 048
     Dates: end: 20170331
  35. HARNAL [Concomitant]
     Active Substance: TAMSULOSIN HYDROCHLORIDE
     Indication: BENIGN PROSTATIC HYPERPLASIA
     Dosage: UNK
     Route: 048
     Dates: end: 20170707
  36. ACELIO [Concomitant]
     Active Substance: ACETAMINOPHEN
     Dosage: UNK
     Route: 042
     Dates: end: 20170323
  37. TEICOPLANIN [Concomitant]
     Active Substance: TEICOPLANIN
     Dosage: UNK
     Route: 041
     Dates: end: 20170714
  38. DARBEPOETIN ALFA [Suspect]
     Active Substance: DARBEPOETIN ALFA
     Dosage: 180 MICROGRAM, Q2WK
     Route: 058
     Dates: start: 20170215, end: 20170315
  39. FEXOFENADINE HYDROCHLORIDE. [Concomitant]
     Active Substance: FEXOFENADINE HYDROCHLORIDE
     Indication: RASH
  40. PROMAC D [Concomitant]
     Active Substance: POLAPREZINC
     Dosage: UNK
     Route: 048
     Dates: end: 20170301
  41. LEVOFLOXACIN. [Concomitant]
     Active Substance: LEVOFLOXACIN
     Dosage: UNK
     Route: 048
     Dates: end: 20170405
  42. MOHRUS PAP XR [Concomitant]
     Active Substance: KETOPROFEN
     Indication: BACK PAIN
     Dosage: UNK
     Dates: end: 20170714
  43. FUROSEMIDE. [Concomitant]
     Active Substance: FUROSEMIDE
     Dosage: UNK
     Route: 065
     Dates: end: 20170323
  44. SOLU-CORTEF [Concomitant]
     Active Substance: HYDROCORTISONE SODIUM SUCCINATE
     Dosage: UNK
     Route: 065
     Dates: end: 20170326
  45. HERBESSER [Concomitant]
     Active Substance: DILTIAZEM HYDROCHLORIDE
     Dosage: UNK
     Route: 065
     Dates: end: 20170324

REACTIONS (9)
  - Pneumonia [Fatal]
  - Pneumonia [Recovered/Resolved]
  - Diabetes mellitus [Not Recovered/Not Resolved]
  - Atrial fibrillation [Recovered/Resolved]
  - Oedema [Recovered/Resolved]
  - Hypoproteinaemia [Not Recovered/Not Resolved]
  - Taste disorder [Recovered/Resolved]
  - Transformation to acute myeloid leukaemia [Fatal]
  - Pyrexia [Recovered/Resolved]

NARRATIVE: CASE EVENT DATE: 20161124
